FAERS Safety Report 20917584 (Version 1)
Quarter: 2022Q2

REPORT INFORMATION
  Report Type: Other
  Country: US (occurrence: None)
  Receive Date: 20220606
  Receipt Date: 20220606
  Transmission Date: 20220721
  Serious: Yes (Other)
  Sender: FDA-Public Use
  Company Number: US-ROCHE-3107959

PATIENT
  Sex: Male

DRUGS (2)
  1. XELODA [Suspect]
     Active Substance: CAPECITABINE
     Indication: Colon cancer
     Route: 048
  2. XELODA [Suspect]
     Active Substance: CAPECITABINE
     Dosage: TAKE 2 TABLETS BY MOUTH 2 TIMES A DAY 1 THROUGH 14 OF EACH 21 DAY CYCLE
     Route: 048

REACTIONS (39)
  - Decreased appetite [Unknown]
  - Night sweats [Unknown]
  - Diplopia [Unknown]
  - Eye irritation [Unknown]
  - Tinnitus [Unknown]
  - Sinus disorder [Unknown]
  - Dysphagia [Unknown]
  - Epistaxis [Unknown]
  - Dysphonia [Unknown]
  - Palpitations [Unknown]
  - Dyspnoea [Unknown]
  - Productive cough [Unknown]
  - Haemoptysis [Unknown]
  - Haematochezia [Unknown]
  - Nausea [Unknown]
  - Dyspepsia [Unknown]
  - Constipation [Unknown]
  - Abdominal pain [Unknown]
  - Anal incontinence [Unknown]
  - Pollakiuria [Unknown]
  - Dysuria [Unknown]
  - Urinary incontinence [Unknown]
  - Musculoskeletal stiffness [Unknown]
  - Arthralgia [Unknown]
  - Skin exfoliation [Unknown]
  - Headache [Unknown]
  - Dizziness [Unknown]
  - Balance disorder [Unknown]
  - Hypoaesthesia [Unknown]
  - Seizure [Unknown]
  - Visual impairment [Unknown]
  - Muscular weakness [Unknown]
  - Sensory loss [Unknown]
  - Paraesthesia [Unknown]
  - Amnesia [Unknown]
  - Groin abscess [Unknown]
  - Erythema [Unknown]
  - Pain in extremity [Unknown]
  - Skin fissures [Unknown]
